FAERS Safety Report 11044124 (Version 1)
Quarter: 2015Q2

REPORT INFORMATION
  Report Type: Spontaneous
  Country: PE (occurrence: PE)
  Receive Date: 20150417
  Receipt Date: 20150417
  Transmission Date: 20150821
  Serious: Yes (Other)
  Sender: FDA-Public Use
  Company Number: PE-PFIZER INC-2015115456

PATIENT
  Age: 75 Year
  Sex: Female

DRUGS (2)
  1. XALATAN [Suspect]
     Active Substance: LATANOPROST
     Indication: GLAUCOMA
     Dosage: 1 DROP IN EACH EYE PER DAY
     Route: 047
     Dates: start: 2010
  2. KRYTANTEK [Concomitant]
     Indication: GLAUCOMA
     Dosage: UNK
     Dates: start: 2010

REACTIONS (2)
  - Blindness [Recovered/Resolved]
  - Incorrect product storage [Unknown]
